FAERS Safety Report 20409210 (Version 1)
Quarter: 2022Q1

REPORT INFORMATION
  Report Type: Spontaneous
  Country: US (occurrence: US)
  Receive Date: 20220201
  Receipt Date: 20220201
  Transmission Date: 20220423
  Serious: No
  Sender: FDA-Public Use
  Company Number: US-BAXTER-2022BAX001753

PATIENT
  Sex: Female

DRUGS (1)
  1. SORBITOL [Suspect]
     Active Substance: SORBITOL
     Indication: Product used for unknown indication
     Route: 065

REACTIONS (1)
  - Adverse reaction [Unknown]
